FAERS Safety Report 8518888-1 (Version None)
Quarter: 2012Q3

REPORT INFORMATION
  Report Type: 
  Country: None (occurrence: None)
  Receive Date: 20120718
  Receipt Date: 20120712
  Transmission Date: 20120928
  Serious: Yes (Death, Hospitalization)
  Sender: FDA-Public Use
  Company Number: PHEH2012US013592

PATIENT
  Sex: Male

DRUGS (2)
  1. FAMPRIDINE [Concomitant]
  2. GILENYA [Suspect]
     Dosage: 0.5 MG, QD
     Route: 048
     Dates: start: 20110901

REACTIONS (8)
  - PROCTALGIA [None]
  - ORAL PAIN [None]
  - PYREXIA [None]
  - DRY MOUTH [None]
  - GASTROINTESTINAL MOTILITY DISORDER [None]
  - CEREBROVASCULAR ACCIDENT [None]
  - DRY EYE [None]
  - CONSTIPATION [None]
